FAERS Safety Report 5900028-6 (Version None)
Quarter: 2008Q3

REPORT INFORMATION
  Report Type: 
  Country: None (occurrence: None)
  Receive Date: 20080925
  Receipt Date: 20080925
  Transmission Date: 20090109
  Serious: Yes (Death)
  Sender: FDA-Public Use
  Company Number: None

PATIENT
  Age: 73 Year
  Sex: Male
  Weight: 104.3273 kg

DRUGS (1)
  1. TARCEVA [Suspect]

REACTIONS (2)
  - LUNG DISORDER [None]
  - RESPIRATORY FAILURE [None]
